FAERS Safety Report 13397680 (Version 1)
Quarter: 2017Q2

REPORT INFORMATION
  Report Type: Spontaneous
  Country: US (occurrence: US)
  Receive Date: 20170403
  Receipt Date: 20170403
  Transmission Date: 20170830
  Serious: Yes (Other)
  Sender: FDA-Public Use
  Company Number: US-IMPAX LABORATORIES, INC-2017-IPXL-00845

PATIENT
  Age: 62 Year
  Sex: Male

DRUGS (1)
  1. RYTARY [Suspect]
     Active Substance: CARBIDOPA\LEVODOPA
     Indication: PARKINSON^S DISEASE
     Dosage: 36.25 /145 MG, 3 DF, EVERY 4HR 6/DAY
     Route: 048

REACTIONS (3)
  - Fall [Not Recovered/Not Resolved]
  - Prescribed overdose [Unknown]
  - Laceration [Not Recovered/Not Resolved]

NARRATIVE: CASE EVENT DATE: 20170321
